APPROVED DRUG PRODUCT: INDOCIN
Active Ingredient: INDOMETHACIN
Strength: 50MG **Federal Register determination that product was not discontinued or withdrawn for safety or effectiveness reasons**
Dosage Form/Route: SUPPOSITORY;RECTAL
Application: N017814 | Product #001
Applicant: ZYLA LIFE SCIENCES US LLC
Approved: Aug 13, 1984 | RLD: Yes | RS: No | Type: DISCN